FAERS Safety Report 18064171 (Version 3)
Quarter: 2020Q3

REPORT INFORMATION
  Report Type: Spontaneous
  Country: DE (occurrence: DE)
  Receive Date: 20200724
  Receipt Date: 20200930
  Transmission Date: 20201103
  Serious: Yes (Death, Life-Threatening, Hospitalization, Other)
  Sender: FDA-Public Use
  Company Number: DE-DRREDDYS-USA/GER/20/0125215

PATIENT
  Age: 55 Year

DRUGS (11)
  1. RAMIPRIL. [Concomitant]
     Active Substance: RAMIPRIL
     Indication: PRODUCT USED FOR UNKNOWN INDICATION
  2. AGGRENOX [Concomitant]
     Active Substance: ASPIRIN\DIPYRIDAMOLE
     Indication: PRODUCT USED FOR UNKNOWN INDICATION
  3. AZATHIOPRINE. [Interacting]
     Active Substance: AZATHIOPRINE
     Indication: VASCULITIS
     Route: 048
  4. QUENSYL [Concomitant]
     Active Substance: HYDROXYCHLOROQUINE
     Indication: PRODUCT USED FOR UNKNOWN INDICATION
  5. FALITHROM [Concomitant]
     Active Substance: PHENPROCOUMON
     Indication: PRODUCT USED FOR UNKNOWN INDICATION
  6. ALLOPURINOL. [Suspect]
     Active Substance: ALLOPURINOL
     Indication: GOUT
  7. PREDNISONE. [Concomitant]
     Active Substance: PREDNISONE
     Indication: PRODUCT USED FOR UNKNOWN INDICATION
  8. DEKRISTOL [Concomitant]
     Active Substance: CHOLECALCIFEROL
     Indication: PRODUCT USED FOR UNKNOWN INDICATION
  9. COLCHYSAT [Concomitant]
     Active Substance: COLCHICUM AUTUMNALE FLOWER\HERBALS
     Indication: PRODUCT USED FOR UNKNOWN INDICATION
  10. METOPROLOL SUCCINATE. [Concomitant]
     Active Substance: METOPROLOL SUCCINATE
     Indication: PRODUCT USED FOR UNKNOWN INDICATION
  11. HYDROCHLOROTHIAZIDE. [Concomitant]
     Active Substance: HYDROCHLOROTHIAZIDE
     Indication: PRODUCT USED FOR UNKNOWN INDICATION

REACTIONS (33)
  - Antiphospholipid syndrome [Fatal]
  - General physical health deterioration [Not Recovered/Not Resolved]
  - Impaired healing [Not Recovered/Not Resolved]
  - Bone marrow failure [Recovering/Resolving]
  - Acute kidney injury [Recovering/Resolving]
  - Product prescribing error [Fatal]
  - Condition aggravated [Fatal]
  - Speech disorder [Not Recovered/Not Resolved]
  - Blindness cortical [Not Recovered/Not Resolved]
  - Cholelithiasis [Not Recovered/Not Resolved]
  - Muscle haemorrhage [Not Recovered/Not Resolved]
  - Pneumonia [Not Recovered/Not Resolved]
  - Hypertensive crisis [Recovering/Resolving]
  - Pancytopenia [Recovering/Resolving]
  - Drug interaction [Not Recovered/Not Resolved]
  - Motor dysfunction [Not Recovered/Not Resolved]
  - Cardiac failure [Recovering/Resolving]
  - Cerebral infarction [Not Recovered/Not Resolved]
  - Sepsis [Not Recovered/Not Resolved]
  - Off label use [Fatal]
  - Ischaemia [Not Recovered/Not Resolved]
  - Abscess limb [Not Recovered/Not Resolved]
  - Cholecystitis acute [Unknown]
  - Hypercoagulation [Not Recovered/Not Resolved]
  - Coagulopathy [Not Recovered/Not Resolved]
  - Arrhythmia [Recovering/Resolving]
  - Cholecystitis acute [Not Recovered/Not Resolved]
  - Acute respiratory failure [Recovering/Resolving]
  - Myelosuppression [Recovering/Resolving]
  - Seizure [Not Recovered/Not Resolved]
  - Isosporiasis [Not Recovered/Not Resolved]
  - Organic brain syndrome [Not Recovered/Not Resolved]
  - Renal failure [Recovering/Resolving]
